FAERS Safety Report 16974859 (Version 1)
Quarter: 2019Q4

REPORT INFORMATION
  Report Type: Spontaneous
  Country: CA (occurrence: CA)
  Receive Date: 20191030
  Receipt Date: 20191030
  Transmission Date: 20200122
  Serious: Yes (Other)
  Sender: FDA-Public Use
  Company Number: CA-TEVA-2019-CA-1128032

PATIENT
  Age: 55 Year
  Sex: Male

DRUGS (5)
  1. ZANTAC [Concomitant]
     Active Substance: RANITIDINE HYDROCHLORIDE
     Indication: CHRONIC SPONTANEOUS URTICARIA
     Dosage: 2 DOSAGE FORMS DAILY;
     Route: 048
  2. MONTELUKAST [Suspect]
     Active Substance: MONTELUKAST SODIUM
     Indication: CHRONIC SPONTANEOUS URTICARIA
     Dosage: 1 DOSAGE FORMS DAILY;
     Route: 048
  3. HYDROXYZINE [Concomitant]
     Active Substance: HYDROXYZINE HYDROCHLORIDE
     Indication: CHRONIC SPONTANEOUS URTICARIA
     Route: 048
  4. PREDNISONE. [Concomitant]
     Active Substance: PREDNISONE
     Indication: CHRONIC SPONTANEOUS URTICARIA
     Dosage: 10 DOSAGE FORMS DAILY;
     Route: 048
  5. ALLEGRA [Concomitant]
     Active Substance: FEXOFENADINE HYDROCHLORIDE
     Indication: CHRONIC SPONTANEOUS URTICARIA
     Dosage: 3 DOSAGE FORMS DAILY;
     Route: 048

REACTIONS (6)
  - Pigmentation disorder [Not Recovered/Not Resolved]
  - Chronic spontaneous urticaria [Not Recovered/Not Resolved]
  - Disease progression [Not Recovered/Not Resolved]
  - Rash macular [Not Recovered/Not Resolved]
  - Swelling [Not Recovered/Not Resolved]
  - Angioedema [Not Recovered/Not Resolved]
